FAERS Safety Report 25889729 (Version 1)
Quarter: 2025Q4

REPORT INFORMATION
  Report Type: Spontaneous
  Country: US (occurrence: None)
  Receive Date: 20251006
  Receipt Date: 20251006
  Transmission Date: 20260117
  Serious: No
  Sender: FDA-CTU
  Company Number: None

PATIENT
  Age: 38 Year
  Sex: Female

DRUGS (2)
  1. ADEMPAS [Suspect]
     Active Substance: RIOCIGUAT
     Indication: Pulmonary arterial hypertension
     Dosage: 2MG TID ORAL
     Route: 048
     Dates: start: 20250707, end: 20251006
  2. ADEMPAS [Suspect]
     Active Substance: RIOCIGUAT
     Indication: Heritable pulmonary arterial hypertension

REACTIONS (3)
  - Headache [None]
  - Discomfort [None]
  - Dyspnoea [None]

NARRATIVE: CASE EVENT DATE: 20251006
